FAERS Safety Report 13272694 (Version 1)
Quarter: 2017Q1

REPORT INFORMATION
  Report Type: Spontaneous
  Country: US (occurrence: US)
  Receive Date: 20170227
  Receipt Date: 20170227
  Transmission Date: 20170428
  Serious: Yes (Life-Threatening, Hospitalization)
  Sender: FDA-Public Use
  Company Number: None

PATIENT
  Age: 53 Year
  Sex: Male
  Weight: 58.5 kg

DRUGS (11)
  1. LEVOTHYROXINE. [Concomitant]
     Active Substance: LEVOTHYROXINE
  2. TACROLIMUS 1MG CAP [Suspect]
     Active Substance: TACROLIMUS
     Indication: IMMUNOSUPPRESSION
     Dosage: QUANTITY:4 CAPSULE(S);?
     Route: 048
     Dates: start: 20170203, end: 20170222
  3. COQ10 [Concomitant]
     Active Substance: UBIDECARENONE
  4. VITAMIN D [Concomitant]
     Active Substance: CHOLECALCIFEROL
  5. ASPRIN [Concomitant]
     Active Substance: ASPIRIN
  6. MYCOPHENIC ACID [Concomitant]
  7. BACTRIM [Concomitant]
     Active Substance: SULFAMETHOXAZOLE\TRIMETHOPRIM
  8. CALCIUM [Concomitant]
     Active Substance: CALCIUM
  9. RED YEAST RICE [Concomitant]
     Active Substance: DIETARY SUPPLEMENT
  10. VITAMIN B COMPLEX [Concomitant]
     Active Substance: CYANOCOBALAMIN\DEXPANTHENOL\NIACINAMIDE\PYRIDOXINE HYDROCHLORIDE\RIBOFLAVIN 5^-PHOSPHATE SODIUM\THIAMINE HYDROCHLORIDE\VITAMIN B COMPLEX
  11. VITAMIN C [Concomitant]
     Active Substance: ASCORBIC ACID

REACTIONS (18)
  - Abdominal discomfort [None]
  - Dyspepsia [None]
  - Vertigo [None]
  - Blood pressure fluctuation [None]
  - Product quality issue [None]
  - Chest pain [None]
  - Vision blurred [None]
  - Loss of consciousness [None]
  - Tremor [None]
  - Infection [None]
  - Vomiting [None]
  - Diarrhoea [None]
  - Dyspnoea [None]
  - Flushing [None]
  - Headache [None]
  - Seizure [None]
  - Muscular weakness [None]
  - Fatigue [None]

NARRATIVE: CASE EVENT DATE: 20170203
